FAERS Safety Report 8275636-0 (Version None)
Quarter: 2012Q2

REPORT INFORMATION
  Report Type: 
  Country: None (occurrence: None)
  Receive Date: 20120412
  Receipt Date: 20120402
  Transmission Date: 20120825
  Serious: No
  Sender: FDA-Public Use
  Company Number: US-BIOGENIDEC-2012BI011702

PATIENT
  Sex: Female

DRUGS (1)
  1. TYSABRI [Suspect]
     Indication: MULTIPLE SCLEROSIS
     Route: 042
     Dates: start: 20110127

REACTIONS (11)
  - FALL [None]
  - PAIN IN EXTREMITY [None]
  - CONTUSION [None]
  - HYPERHIDROSIS [None]
  - EXOSTOSIS [None]
  - ARTHRALGIA [None]
  - JOINT RANGE OF MOTION DECREASED [None]
  - CARDIAC STRESS TEST ABNORMAL [None]
  - SKELETAL INJURY [None]
  - CREPITATIONS [None]
  - CHEST PAIN [None]
